FAERS Safety Report 9518101 (Version 1)
Quarter: 2013Q1

REPORT INFORMATION
  Report Type: Spontaneous
  Country: US (occurrence: None)
  Receive Date: 20130305
  Receipt Date: 20130305
  Transmission Date: 20140127
  Serious: Yes (Other)
  Sender: FDA-Public Use
  Company Number: 163-21880-12120511

PATIENT
  Age: 41 Year
  Sex: Male

DRUGS (9)
  1. REVLIMID (LEANLIDOMIDE) (25 MILLIGRAM, CAPSULE) [Suspect]
     Indication: PLASMA CELL MYELOMA
     Route: 048
     Dates: start: 201105
  2. ALLOPURINOL (ALLOPURINOL)(UNKNOWN) [Concomitant]
  3. ASPIRIN (ACEYTLSALICYLIC AICD) (TABLETS) [Concomitant]
  4. BACTRIM (BACTRIM)(UNKNOWN) [Concomitant]
  5. CITALOPRAM (CITALOPRAM) (UNKNOWN) [Concomitant]
  6. KLOR-CON (POTASSIUM CHLORIDE) [Concomitant]
  7. MOEXIPRIL HCL (MOEXIPRIL HYDROCHLORIDE) [Concomitant]
  8. PRILOSEC (OMEPRAZOLE) (CAPSULE) [Concomitant]
  9. VITAMIN D (ERGOCALCIFEROL) (UNKNOWN) [Concomitant]

REACTIONS (1)
  - Osteomyelitis [None]
